FAERS Safety Report 23688186 (Version 1)
Quarter: 2024Q1

REPORT INFORMATION
  Report Type: Spontaneous
  Country: AE (occurrence: AE)
  Receive Date: 20240329
  Receipt Date: 20240329
  Transmission Date: 20240410
  Serious: Yes (Hospitalization)
  Sender: FDA-Public Use
  Company Number: AE-JNJFOC-20240365744

PATIENT
  Age: 25 Year
  Sex: Female

DRUGS (1)
  1. SPRAVATO [Suspect]
     Active Substance: ESKETAMINE
     Indication: Depression
     Dates: start: 2024

REACTIONS (1)
  - Serotonin syndrome [Recovering/Resolving]

NARRATIVE: CASE EVENT DATE: 20240301
